FAERS Safety Report 4279260-6 (Version None)
Quarter: 2004Q1

REPORT INFORMATION
  Report Type: 
  Country: None (occurrence: None)
  Receive Date: 20040127
  Receipt Date: 20040107
  Transmission Date: 20041129
  Serious: Yes (Other)
  Sender: FDA-Public Use
  Company Number: PHEH2004US00595

PATIENT
  Age: 70 Year
  Sex: Male

DRUGS (3)
  1. ZOMETA [Suspect]
     Indication: MULTIPLE MYELOMA
     Dosage: 4 MG, QMO
     Route: 042
  2. SIMVASTATIN [Concomitant]
  3. PRILOSEC [Concomitant]

REACTIONS (10)
  - CONTUSION [None]
  - ENDODONTIC PROCEDURE [None]
  - EXOSTOSIS [None]
  - GINGIVAL PAIN [None]
  - IMPAIRED HEALING [None]
  - LOSS OF CONSCIOUSNESS [None]
  - OSTEONECROSIS [None]
  - PAIN IN JAW [None]
  - TOOTH EXTRACTION [None]
  - TOOTHACHE [None]
